FAERS Safety Report 5921549-6 (Version None)
Quarter: 2008Q3

REPORT INFORMATION
  Report Type: 
  Country: None (occurrence: None)
  Receive Date: 20080909
  Receipt Date: 20071102
  Transmission Date: 20090109
  Serious: Yes (Other)
  Sender: FDA-Public Use
  Company Number: 163-20785-07110090

PATIENT
  Age: 74 Year
  Sex: Female
  Weight: 64.55 kg

DRUGS (3)
  1. THALOMID [Suspect]
     Indication: UTERINE CANCER
     Dosage: 600 MG, QHS, ORAL ; 400 MG, QHS, ORAL ; 200 MG, QHS, ORAL
     Route: 048
     Dates: start: 20070921, end: 20071001
  2. THALOMID [Suspect]
     Indication: UTERINE CANCER
     Dosage: 600 MG, QHS, ORAL ; 400 MG, QHS, ORAL ; 200 MG, QHS, ORAL
     Route: 048
     Dates: start: 20071005, end: 20071001
  3. THALOMID [Suspect]
     Indication: UTERINE CANCER
     Dosage: 600 MG, QHS, ORAL ; 400 MG, QHS, ORAL ; 200 MG, QHS, ORAL
     Route: 048
     Dates: start: 20071019, end: 20071022

REACTIONS (3)
  - DYSPNOEA [None]
  - HYPONATRAEMIA [None]
  - HYPOXIA [None]
